FAERS Safety Report 8238292-3 (Version None)
Quarter: 2012Q1

REPORT INFORMATION
  Report Type: 
  Country: None (occurrence: None)
  Receive Date: 20120327
  Receipt Date: 20120313
  Transmission Date: 20120608
  Serious: Yes (Hospitalization)
  Sender: FDA-Public Use
  Company Number: GB-MYLANLABS-2011S1018568

PATIENT
  Age: 33 Year
  Sex: Female

DRUGS (7)
  1. IMMUNE GLOBULIN NOS [Suspect]
     Indication: HAEMATOLOGY TEST ABNORMAL
     Route: 041
     Dates: start: 20100922, end: 20100923
  2. DEXAMETHASONE [Suspect]
     Indication: ANTIEMETIC SUPPORTIVE CARE
     Route: 048
     Dates: start: 20100907, end: 20101010
  3. LANSOPRAZOLE [Suspect]
     Indication: GASTROOESOPHAGEAL REFLUX PROPHYLAXIS
     Route: 048
     Dates: start: 20100907, end: 20100928
  4. RITUXIMAB [Suspect]
     Indication: HAEMATOLOGY TEST ABNORMAL
     Route: 041
     Dates: start: 20100917, end: 20100924
  5. NORETHIDRONE [Suspect]
     Indication: GASTROOESOPHAGEAL REFLUX PROPHYLAXIS
     Route: 048
     Dates: start: 20100922, end: 20100928
  6. TRANEXAMIC ACID [Suspect]
     Indication: PRODUCT USED FOR UNKNOWN INDICATION
     Route: 048
     Dates: start: 20100922, end: 20100928
  7. NPLATE [Suspect]
     Indication: IDIOPATHIC THROMBOCYTOPENIC PURPURA
     Route: 058
     Dates: start: 20100420, end: 20100920

REACTIONS (6)
  - RASH [None]
  - RECTAL HAEMORRHAGE [None]
  - ARTHRALGIA [None]
  - VAGINAL HAEMORRHAGE [None]
  - BLOOD BLISTER [None]
  - PURPURA [None]
